FAERS Safety Report 14680021 (Version 1)
Quarter: 2018Q1

REPORT INFORMATION
  Report Type: Spontaneous
  Country: US (occurrence: US)
  Receive Date: 20180325
  Receipt Date: 20180325
  Transmission Date: 20180509
  Serious: Yes (Life-Threatening, Disabling)
  Sender: FDA-Public Use
  Company Number: None

PATIENT
  Age: 46 Year
  Sex: Female
  Weight: 62.1 kg

DRUGS (2)
  1. LORAZEPAM. [Concomitant]
     Active Substance: LORAZEPAM
  2. CIPROFLOXACIN. [Suspect]
     Active Substance: CIPROFLOXACIN
     Indication: GASTROENTERITIS BACTERIAL
     Route: 048
     Dates: start: 20180312, end: 20180314

REACTIONS (4)
  - Myalgia [None]
  - Panic attack [None]
  - Pain in jaw [None]
  - Tendon pain [None]

NARRATIVE: CASE EVENT DATE: 20180319
